FAERS Safety Report 9858185 (Version 1)
Quarter: 2014Q1

REPORT INFORMATION
  Report Type: Spontaneous
  Country: IT (occurrence: None)
  Receive Date: 20140129
  Receipt Date: 20140129
  Transmission Date: 20141002
  Serious: Yes (Hospitalization)
  Sender: FDA-Public Use
  Company Number: 2138371

PATIENT
  Age: 72 Year
  Sex: Male
  Weight: 78 kg

DRUGS (14)
  1. CARBOPLATIN [Suspect]
     Indication: PLEURAL NEOPLASM
     Dosage: 340 MG MILLIGRAM(S) (CYCLICAL) INTRAENOUS (NOT OTHERWISE SPECIFIED)
     Route: 042
     Dates: start: 20130423, end: 20131009
  2. ONDANSETRON HIKMA) [Concomitant]
  3. DEXAMETHSONE [Concomitant]
  4. TRIMETON /00072502/ [Concomitant]
  5. OMEPRAZOLE [Concomitant]
  6. CARDIOASPIRIN [Concomitant]
  7. TACHIDOL [Concomitant]
  8. DOBETIN  /00056201/ [Concomitant]
  9. DILTIAZEM [Concomitant]
  10. BROMAZEPAM [Concomitant]
  11. GABAPETIN [Concomitant]
  12. ALIMTA [Concomitant]
  13. FOLINGRAV [Concomitant]
  14. MULTIVITAMIN AND MINERAL SUPPLEMENT [Concomitant]

REACTIONS (3)
  - Dyspnoea [None]
  - Tachycardia [None]
  - Hypertension [None]
